FAERS Safety Report 24121686 (Version 5)
Quarter: 2024Q3

REPORT INFORMATION
  Report Type: Spontaneous
  Country: GR (occurrence: GR)
  Receive Date: 20240722
  Receipt Date: 20240924
  Transmission Date: 20241017
  Serious: No
  Sender: PFIZER
  Company Number: GR-PFIZER INC-202400215110

PATIENT
  Age: 13 Year
  Sex: Female
  Weight: 52 kg

DRUGS (1)
  1. GENOTROPIN [Suspect]
     Active Substance: SOMATROPIN
     Indication: Growth hormone deficiency
     Dosage: 1.6MG X 6 DAYS/5.3 MG PEN
     Route: 058
     Dates: start: 202402, end: 20240714

REACTIONS (4)
  - Device mechanical issue [Unknown]
  - Device delivery system issue [Unknown]
  - Drug dose omission by device [Unknown]
  - Incorrect dose administered by device [Unknown]

NARRATIVE: CASE EVENT DATE: 20240713
